FAERS Safety Report 25385423 (Version 1)
Quarter: 2025Q2

REPORT INFORMATION
  Report Type: Report from Study
  Country: US (occurrence: US)
  Receive Date: 20250602
  Receipt Date: 20250602
  Transmission Date: 20250716
  Serious: Yes (Other)
  Sender: NOVARTIS
  Company Number: US-002147023-NVSC2025US086969

PATIENT
  Sex: Male

DRUGS (1)
  1. FABHALTA [Suspect]
     Active Substance: IPTACOPAN HYDROCHLORIDE
     Indication: Haematuria
     Dosage: 200 MG, BID
     Route: 048

REACTIONS (10)
  - Chronic kidney disease [Unknown]
  - Peripheral swelling [Unknown]
  - Hypertension [Unknown]
  - Blood urea abnormal [Unknown]
  - Glomerular filtration rate abnormal [Unknown]
  - Blood glucose abnormal [Unknown]
  - Blood calcium abnormal [Unknown]
  - Vitamin D abnormal [Unknown]
  - Haemoglobin abnormal [Unknown]
  - Urine protein/creatinine ratio abnormal [Unknown]
